FAERS Safety Report 22248334 (Version 1)
Quarter: 2023Q2

REPORT INFORMATION
  Report Type: Spontaneous
  Country: ES (occurrence: ES)
  Receive Date: 20230425
  Receipt Date: 20230425
  Transmission Date: 20230721
  Serious: Yes (Other)
  Sender: FDA-Public Use
  Company Number: None

PATIENT
  Age: 66 Year
  Sex: Male

DRUGS (2)
  1. HYDROCHLOROTHIAZIDE\TELMISARTAN [Suspect]
     Active Substance: HYDROCHLOROTHIAZIDE\TELMISARTAN
     Indication: Product used for unknown indication
     Dates: start: 2018
  2. PERMIXON 160 mg CAPSULAS DURAS, 60 c?psulas [Concomitant]
     Indication: Benign prostatic hyperplasia
     Dates: start: 2016

REACTIONS (1)
  - Basosquamous carcinoma [Recovering/Resolving]

NARRATIVE: CASE EVENT DATE: 20220101
